FAERS Safety Report 5873792-2 (Version None)
Quarter: 2008Q3

REPORT INFORMATION
  Report Type: 
  Country: None (occurrence: None)
  Receive Date: 20080903
  Receipt Date: 20080903
  Transmission Date: 20090109
  Serious: Yes (Other)
  Sender: FDA-Public Use
  Company Number: None

PATIENT
  Sex: Female

DRUGS (1)
  1. ZITHROMAX [Suspect]
     Indication: PRODUCTIVE COUGH
     Dosage: 250MG 2 ONCE THEN 1 DAIL PO
     Route: 048
     Dates: start: 20080820, end: 20080821

REACTIONS (1)
  - DRUG HYPERSENSITIVITY [None]
